FAERS Safety Report 16980145 (Version 1)
Quarter: 2019Q4

REPORT INFORMATION
  Report Type: Spontaneous
  Country: CZ (occurrence: CZ)
  Receive Date: 20191031
  Receipt Date: 20191031
  Transmission Date: 20200122
  Serious: Yes (Life-Threatening, Hospitalization)
  Sender: FDA-Public Use
  Company Number: CZ-ALLERGAN-1943121US

PATIENT
  Sex: Male
  Weight: 80 kg

DRUGS (3)
  1. IMURAN [Suspect]
     Active Substance: AZATHIOPRINE
     Indication: COLITIS ULCERATIVE
     Dosage: 0-1-1, LONG-TERM MEDICATION
     Route: 048
     Dates: end: 20191002
  2. MILURIT 300 MG [Concomitant]
     Indication: HYPERURICAEMIA
     Dosage: LONG-TERM MEDICATION. PATIENT DISMISSED FROM HOSPITALISATION WITH DOSE REDUCTION, 0-1/2-0
     Route: 048
  3. MESALAZINE UNK [Suspect]
     Active Substance: MESALAMINE
     Indication: COLITIS ULCERATIVE

REACTIONS (2)
  - Bone marrow failure [Recovered/Resolved]
  - Pancytopenia [Recovered/Resolved]

NARRATIVE: CASE EVENT DATE: 20191002
